FAERS Safety Report 9381788 (Version 2)
Quarter: 2013Q3

REPORT INFORMATION
  Report Type: Spontaneous
  Country: JP (occurrence: JP)
  Receive Date: 20130703
  Receipt Date: 20130722
  Transmission Date: 20140515
  Serious: Yes (Hospitalization)
  Sender: FDA-Public Use
  Company Number: JP-PFIZER INC-2013195902

PATIENT
  Age: 75 Year
  Sex: Female

DRUGS (2)
  1. ANCARON [Suspect]
     Indication: CARDIAC DISORDER
     Dosage: UNK
     Route: 065
  2. HEPARIN [Suspect]
     Indication: THROMBOSIS PROPHYLAXIS
     Dosage: UNK
     Route: 065

REACTIONS (3)
  - Interstitial lung disease [Recovering/Resolving]
  - Pneumomediastinum [Unknown]
  - Abdominal wall haematoma [Recovering/Resolving]
